FAERS Safety Report 7574759-9 (Version None)
Quarter: 2011Q2

REPORT INFORMATION
  Report Type: 
  Country: None (occurrence: None)
  Receive Date: 20110627
  Receipt Date: 20110622
  Transmission Date: 20111010
  Serious: Yes (Hospitalization)
  Sender: FDA-Public Use
  Company Number: US-SHIRE-ALL1-2011-01960

PATIENT
  Age: 8 Year
  Sex: Male
  Weight: 22.676 kg

DRUGS (2)
  1. ZOLOFT [Concomitant]
     Indication: PRODUCT USED FOR UNKNOWN INDICATION
     Dosage: UNK UNK, UNKNOWN
     Route: 048
  2. ADDERALL XR 10 [Suspect]
     Indication: ATTENTION DEFICIT/HYPERACTIVITY DISORDER
     Dosage: 40 MG, 1X/DAY:QD (2) 20 MG CAPSULES
     Route: 048

REACTIONS (5)
  - DYSKINESIA [None]
  - OVERDOSE [None]
  - AGGRESSION [None]
  - DECREASED APPETITE [None]
  - HEADACHE [None]
